FAERS Safety Report 9340054 (Version 1)
Quarter: 2013Q2

REPORT INFORMATION
  Report Type: Spontaneous
  Country: US (occurrence: US)
  Receive Date: 20130610
  Receipt Date: 20130610
  Transmission Date: 20140414
  Serious: No
  Sender: FDA-Public Use
  Company Number: US-ASTELLAS-2013US004989

PATIENT
  Sex: Male

DRUGS (1)
  1. XTANDI [Suspect]
     Indication: ILL-DEFINED DISORDER
     Dosage: 80 MG, UID/QD
     Route: 048
     Dates: start: 20130101, end: 20130301

REACTIONS (4)
  - Underdose [Unknown]
  - Hypersomnia [Unknown]
  - Decreased appetite [Unknown]
  - Fatigue [Unknown]
